FAERS Safety Report 20054203 (Version 3)
Quarter: 2021Q4

REPORT INFORMATION
  Report Type: Spontaneous
  Country: CR (occurrence: None)
  Receive Date: 20211110
  Receipt Date: 20211202
  Transmission Date: 20220303
  Serious: Yes (Death, Hospitalization, Other)
  Sender: FDA-Public Use
  Company Number: CR-ROCHE-2948166

PATIENT
  Age: 44 Year
  Sex: Male

DRUGS (2)
  1. OCREVUS [Suspect]
     Active Substance: OCRELIZUMAB
     Indication: Secondary progressive multiple sclerosis
     Dosage: DOSE AND FREQUENCY WERE NOT REPORTED
     Route: 065
     Dates: start: 202001, end: 20210728
  2. COVID-19 VACCINE [Concomitant]
     Dates: start: 20210527, end: 20210819

REACTIONS (6)
  - COVID-19 [Recovered/Resolved]
  - COVID-19 pneumonia [Fatal]
  - Herpes virus infection [Unknown]
  - Septic shock [Unknown]
  - Acute kidney injury [Unknown]
  - Hypoxic-ischaemic encephalopathy [Unknown]

NARRATIVE: CASE EVENT DATE: 20210914
